FAERS Safety Report 5189758-4 (Version None)
Quarter: 2006Q4

REPORT INFORMATION
  Report Type: 
  Country: None (occurrence: None)
  Receive Date: 20061215
  Receipt Date: 20061202
  Transmission Date: 20070319
  Serious: Yes (Other)
  Sender: FDA-Public Use
  Company Number: 2006143987

PATIENT
  Age: 51 Year
  Sex: Female
  Weight: 39.9165 kg

DRUGS (5)
  1. CHANTIX [Suspect]
     Indication: SMOKING CESSATION THERAPY
     Dosage: 2 MG (1 MG, 2 IN 1 D), ORAL
     Route: 048
     Dates: start: 20061024
  2. ZOLOFT [Suspect]
     Indication: DEPRESSION
     Dosage: 200 MG (200 MG, 1 IN 1 D), ORAL
     Route: 048
  3. WELLBUTRIN [Suspect]
     Indication: SMOKING CESSATION THERAPY
     Dates: start: 20030101, end: 20030101
  4. ATIVAN [Concomitant]
  5. OXYGEN (OXYGEN) [Concomitant]

REACTIONS (16)
  - AMNESIA [None]
  - BALANCE DISORDER [None]
  - CHOKING [None]
  - DIZZINESS [None]
  - DRUG DEPENDENCE [None]
  - DRUG WITHDRAWAL SYNDROME [None]
  - FACE INJURY [None]
  - FACIAL BONES FRACTURE [None]
  - FALL [None]
  - FEELING ABNORMAL [None]
  - GRAND MAL CONVULSION [None]
  - IMPAIRED WORK ABILITY [None]
  - LIP SWELLING [None]
  - PERIORBITAL HAEMATOMA [None]
  - PULMONARY MYCOSIS [None]
  - TUBERCULOSIS [None]
